FAERS Safety Report 13841505 (Version 1)
Quarter: 2017Q3

REPORT INFORMATION
  Report Type: Spontaneous
  Country: CN (occurrence: CN)
  Receive Date: 20170807
  Receipt Date: 20170807
  Transmission Date: 20171127
  Serious: Yes (Hospitalization, Other)
  Sender: FDA-Public Use
  Company Number: CN-GILEAD-2017-0287060

PATIENT
  Age: 79 Year
  Sex: Female

DRUGS (1)
  1. HEPSERA [Suspect]
     Active Substance: ADEFOVIR DIPIVOXIL
     Indication: PRODUCT USED FOR UNKNOWN INDICATION
     Dosage: 10 MG, QD
     Route: 065

REACTIONS (7)
  - Gait disturbance [Recovered/Resolved]
  - Hypophosphataemia [Recovered/Resolved]
  - Muscular weakness [Recovered/Resolved]
  - Pain [Recovered/Resolved]
  - Back pain [Recovered/Resolved]
  - Osteomalacia [Recovered/Resolved]
  - Bone pain [Recovered/Resolved]
